FAERS Safety Report 9731792 (Version 1)
Quarter: 2013Q4

REPORT INFORMATION
  Report Type: Report from Study
  Country: ES (occurrence: ES)
  Receive Date: 20131204
  Receipt Date: 20131204
  Transmission Date: 20140711
  Serious: Yes (Death, Life-Threatening, Hospitalization, Disabling)
  Sender: FDA-Public Use
  Company Number: ES-TEVA-448356USA

PATIENT
  Age: 69 Year
  Sex: Male

DRUGS (17)
  1. BENDAMUSTINE [Suspect]
     Indication: PLASMA CELL MYELOMA
     Route: 042
     Dates: start: 20130426, end: 20130427
  2. BENDAMUSTINE [Suspect]
     Route: 042
     Dates: start: 20130528
  3. LENALIDOMIDE [Suspect]
     Indication: PLASMA CELL MYELOMA
     Dates: start: 20130226, end: 20130326
  4. LENALIDOMIDE [Suspect]
     Dates: start: 20130917, end: 20130929
  5. VELCADE [Suspect]
     Indication: PLASMA CELL MYELOMA
     Dates: start: 20120424, end: 20120502
  6. VELCADE [Suspect]
     Dates: start: 20130326, end: 20130404
  7. VELCADE [Suspect]
     Dates: start: 20131011, end: 20131014
  8. ADRIAMYCIN [Suspect]
     Indication: PLASMA CELL MYELOMA
     Dates: start: 20131011
  9. DEXAMETHASONE [Suspect]
     Indication: PLASMA CELL MYELOMA
     Dates: start: 20130326, end: 20130404
  10. DEXAMETHASONE [Suspect]
     Dates: start: 20130917
  11. DEXAMETHASONE [Suspect]
     Dates: start: 20131011
  12. PREDNISONE [Suspect]
     Indication: PLASMA CELL MYELOMA
     Dates: start: 20130426
  13. PREDNISONE [Suspect]
     Dates: start: 20130526
  14. BACTRIM [Concomitant]
     Indication: PLASMA CELL MYELOMA
     Dates: start: 20130228, end: 20131026
  15. ACICLOVIR [Concomitant]
     Indication: PLASMA CELL MYELOMA
     Dates: start: 20130228, end: 20131028
  16. TEICOPLANIN [Concomitant]
     Indication: PLASMA CELL MYELOMA
     Dates: start: 20130829, end: 20130907
  17. NEUPOGEN [Concomitant]
     Indication: PLASMA CELL MYELOMA
     Dates: start: 20130827, end: 20130909

REACTIONS (1)
  - Renal failure [Fatal]
